FAERS Safety Report 9536150 (Version 1)
Quarter: 2013Q2

REPORT INFORMATION
  Report Type: Spontaneous
  Country: US (occurrence: None)
  Receive Date: 20130507
  Receipt Date: 20130507
  Transmission Date: 20140414
  Serious: Yes (Other)
  Sender: FDA-Public Use
  Company Number: PHEH2012US023508

PATIENT
  Age: 35 Year
  Sex: Female

DRUGS (9)
  1. AFINITOR [Suspect]
     Indication: TUBEROUS SCLEROSIS
     Route: 048
     Dates: start: 20120127
  2. LAMICTAL (LAMOTRIGINE) [Concomitant]
  3. VITAMIN D (ERGOCALCIFEROL) [Concomitant]
  4. VITAMIN SUPPLEMENTS [Concomitant]
  5. ARANOSE (ARANOZA) [Concomitant]
  6. SYNTHROID (LEVOTHYROXINE SODIUM) [Concomitant]
  7. NEXIUM (AMOXICILLIN TRIHYDRATE, CLARITHROMYCIN, ESOMEPRAZOLE MAGNESIUM) [Concomitant]
  8. FISH OIL [Concomitant]
  9. PRAVASTATIN [Concomitant]

REACTIONS (2)
  - Blood cholesterol increased [None]
  - Acne [None]
